FAERS Safety Report 5313989-3 (Version None)
Quarter: 2007Q2

REPORT INFORMATION
  Report Type: 
  Country: None (occurrence: None)
  Receive Date: 20070501
  Receipt Date: 20070425
  Transmission Date: 20071010
  Serious: Yes (Other)
  Sender: FDA-Public Use
  Company Number: GB-BOEHRINGER INGELHEIM GMBH, GERMANY-2006-UK-03548UK

PATIENT
  Age: 73 Year
  Sex: Female
  Weight: 68 kg

DRUGS (2)
  1. TIOTROPIUM (00015/0190/A) [Suspect]
     Route: 055
     Dates: start: 20050627, end: 20060627
  2. IPRATROPIUM BROMIDE [Concomitant]
     Route: 055
     Dates: start: 20040105

REACTIONS (1)
  - DYSPNOEA [None]
